FAERS Safety Report 5458572-4 (Version None)
Quarter: 2007Q3

REPORT INFORMATION
  Report Type: 
  Country: None (occurrence: None)
  Receive Date: 20070919
  Receipt Date: 20070410
  Transmission Date: 20080115
  Serious: Yes (Hospitalization)
  Sender: FDA-Public Use
  Company Number: US-ASTRAZENECA-2007UW07064

PATIENT
  Age: 58 Year
  Sex: Male

DRUGS (13)
  1. SEROQUEL [Suspect]
     Route: 048
     Dates: start: 20060623
  2. SEROQUEL [Suspect]
     Route: 048
     Dates: start: 20061019
  3. SEROQUEL [Suspect]
     Route: 048
     Dates: start: 20061116
  4. RISPERDAL [Concomitant]
  5. ATIVAN [Concomitant]
  6. LIPITOR [Concomitant]
  7. FLOMAX [Concomitant]
  8. ANTIVERT [Concomitant]
  9. COLACE [Concomitant]
  10. HYDRODIURAL [Concomitant]
  11. ALDACTONE [Concomitant]
  12. VOLTAREN [Concomitant]
  13. AVODART [Concomitant]

REACTIONS (2)
  - HYPONATRAEMIA [None]
  - RENAL FAILURE ACUTE [None]
